FAERS Safety Report 8313806-3 (Version None)
Quarter: 2012Q2

REPORT INFORMATION
  Report Type: 
  Country: None (occurrence: None)
  Receive Date: 20120426
  Receipt Date: 20120418
  Transmission Date: 20120825
  Serious: Yes (Other)
  Sender: FDA-Public Use
  Company Number: CO-BRISTOL-MYERS SQUIBB COMPANY-16389256

PATIENT
  Age: 47 Year
  Sex: Female

DRUGS (3)
  1. ORENCIA [Suspect]
     Indication: RHEUMATOID ARTHRITIS
     Dosage: NO OF DOSE: 4.
  2. ARAVA [Suspect]
  3. HYDROCORTISONE [Suspect]

REACTIONS (6)
  - THROAT IRRITATION [None]
  - TONGUE PRURITUS [None]
  - COUGH [None]
  - PAIN IN EXTREMITY [None]
  - OSTEONECROSIS [None]
  - HYPOAESTHESIA [None]
